FAERS Safety Report 9042728 (Version 1)
Quarter: 2013Q1

REPORT INFORMATION
  Report Type: Report from Study
  Country: US (occurrence: US)
  Receive Date: 20130129
  Receipt Date: 20130129
  Transmission Date: 20140127
  Serious: No
  Sender: FDA-Public Use
  Company Number: US-ABBOTT-12P-163-0906030-00

PATIENT
  Sex: Male
  Weight: 83.99 kg

DRUGS (2)
  1. HUMIRA 40 MG/0.8 ML PEN [Suspect]
     Indication: PSORIASIS
     Dates: start: 2010, end: 2011
  2. HUMIRA 40 MG/0.8 ML PEN [Suspect]

REACTIONS (5)
  - Epistaxis [Not Recovered/Not Resolved]
  - Contusion [Not Recovered/Not Resolved]
  - Psoriasis [Recovering/Resolving]
  - Drug effect delayed [Not Recovered/Not Resolved]
  - Drug effect decreased [Not Recovered/Not Resolved]
